FAERS Safety Report 5504752-9 (Version None)
Quarter: 2007Q4

REPORT INFORMATION
  Report Type: 
  Country: None (occurrence: None)
  Receive Date: 20071102
  Receipt Date: 20071026
  Transmission Date: 20080405
  Serious: Yes (Life-Threatening, Hospitalization)
  Sender: FDA-Public Use
  Company Number: JP-ASTRAZENECA-2007SE03268

PATIENT
  Age: 56 Year
  Sex: Male

DRUGS (6)
  1. BLOPRESS TABLETS 8 [Suspect]
     Indication: HYPERTENSION
     Route: 048
     Dates: start: 20040728, end: 20060728
  2. BLOPRESS TABLETS 8 [Suspect]
     Route: 048
     Dates: start: 20060729, end: 20060729
  3. BLOPRESS TABLETS 8 [Suspect]
     Route: 048
     Dates: start: 20060808
  4. TENORMIN [Suspect]
     Route: 048
     Dates: start: 20060729, end: 20060729
  5. GASPORT [Suspect]
     Route: 048
     Dates: start: 20060729, end: 20060729
  6. ASPIRIN [Suspect]
     Route: 048
     Dates: start: 20060729, end: 20060729

REACTIONS (6)
  - BLOOD PRESSURE DECREASED [None]
  - BRADYCARDIA [None]
  - DEPRESSED LEVEL OF CONSCIOUSNESS [None]
  - ELECTROCARDIOGRAM QT PROLONGED [None]
  - INTENTIONAL OVERDOSE [None]
  - SHOCK HAEMORRHAGIC [None]
